FAERS Safety Report 9498944 (Version 2)
Quarter: 2013Q3

REPORT INFORMATION
  Report Type: Report from Study
  Country: CZ (occurrence: CZ)
  Receive Date: 20130904
  Receipt Date: 20130924
  Transmission Date: 20140515
  Serious: Yes (Hospitalization)
  Sender: FDA-Public Use
  Company Number: CZ-ROCHE-1267557

PATIENT
  Age: 41 Year
  Sex: Male
  Weight: 71 kg

DRUGS (13)
  1. RITUXIMAB [Suspect]
     Indication: DIFFUSE LARGE B-CELL LYMPHOMA
     Dosage: DATE OF MOST RECENT DOSE OF RITUXIMAB (345 ML, DOSE CONCENTRATION: 2 MG/ML) PRIOR TO SAE: 14/AUG/201
     Route: 042
     Dates: start: 20130703
  2. CYCLOPHOSPHAMIDE [Suspect]
     Indication: DIFFUSE LARGE B-CELL LYMPHOMA
     Dosage: DATE OF MOST RECENT DOSE OF CYCLOPHOSPHAMIDE (1380 MG) PRIOR TO SAE: 14/AUG/2013
     Route: 042
     Dates: start: 20130703
  3. DOXORUBICIN [Suspect]
     Indication: DIFFUSE LARGE B-CELL LYMPHOMA
     Dosage: DATE OF MOST RECENT DOSE OF DOXORUBICIN (92 MG) PRIOR TO SAE: 14/AUG/2013
     Route: 042
     Dates: start: 20130703
  4. VINCRISTINE [Suspect]
     Indication: DIFFUSE LARGE B-CELL LYMPHOMA
     Dosage: DATE OF MOST RECENT DOSE OF VINCRISTINE (2 MG) PRIOR TO SAE: 14/AUG/2013
     Route: 050
     Dates: start: 20130703
  5. PREDNISONE [Suspect]
     Indication: DIFFUSE LARGE B-CELL LYMPHOMA
     Dosage: DATE OF MOST RECENT DOSE OF PREDNISOLONE (100 MG) PRIOR TO SAE: 18/AUG/2013
     Route: 065
     Dates: start: 20130703
  6. PARALEN [Concomitant]
     Route: 065
     Dates: start: 20130703
  7. DITHIADEN [Concomitant]
     Route: 065
     Dates: start: 20130703
  8. HELICID [Concomitant]
     Route: 065
     Dates: start: 20130703
  9. ALGIFEN (CZECH REPUBLIC) [Concomitant]
     Route: 065
     Dates: start: 20130703
  10. ONDEMET [Concomitant]
     Route: 065
     Dates: start: 20130703
  11. DEGAN [Concomitant]
     Route: 065
     Dates: start: 20130703
  12. CIFLOXINAL [Concomitant]
     Route: 065
     Dates: start: 20130724
  13. KLACID (CZECH REPUBLIC) [Concomitant]
     Indication: OROPHARYNGEAL PAIN
     Route: 065
     Dates: start: 20130822

REACTIONS (1)
  - Small intestinal perforation [Recovered/Resolved]
